FAERS Safety Report 9407999 (Version 1)
Quarter: 2013Q3

REPORT INFORMATION
  Report Type: Spontaneous
  Country: US (occurrence: US)
  Receive Date: 20130718
  Receipt Date: 20130718
  Transmission Date: 20140515
  Serious: Yes (Hospitalization)
  Sender: FDA-Public Use
  Company Number: US-B.I. PHARMACEUTICALS,INC./RIDGEFIELD-2013-BI-20754BP

PATIENT
  Age: 86 Year
  Sex: Male
  Weight: 34 kg

DRUGS (6)
  1. PRADAXA [Suspect]
     Indication: ATRIAL FIBRILLATION
     Dosage: 300 MG
     Route: 048
     Dates: start: 20130715
  2. PRADAXA [Suspect]
     Dosage: 300 MG
     Route: 048
     Dates: start: 2012, end: 20130711
  3. PRADAXA [Suspect]
     Dosage: 300 MG
     Route: 048
     Dates: start: 2011, end: 2012
  4. PRADAXA [Suspect]
     Dosage: 300 MG
     Route: 048
     Dates: start: 2011, end: 2011
  5. ATENOLOL [Concomitant]
     Indication: HYPERTENSION
     Dosage: 25 MG
     Route: 048
     Dates: start: 2010
  6. AMLODIPINE [Concomitant]
     Indication: HYPERTENSION
     Dosage: 2.5 MG
     Route: 048
     Dates: start: 2010

REACTIONS (5)
  - Arthritis [Recovered/Resolved]
  - Periorbital contusion [Recovered/Resolved]
  - Bladder mass [Not Recovered/Not Resolved]
  - Scab [Recovered/Resolved]
  - Blood urine present [Recovered/Resolved]
